FAERS Safety Report 5401467-2 (Version None)
Quarter: 2007Q3

REPORT INFORMATION
  Report Type: 
  Country: None (occurrence: None)
  Receive Date: 20070726
  Receipt Date: 20070716
  Transmission Date: 20080115
  Serious: Yes (Hospitalization)
  Sender: FDA-Public Use
  Company Number: 2007-03342

PATIENT
  Age: 47 Year
  Sex: Female

DRUGS (1)
  1. CLARITHROMYCIN EXTENDED RELEASE [Suspect]
     Indication: PNEUMONIA
     Dosage: 500 MG, X 6 TABLETS, ORAL
     Route: 048
     Dates: start: 20060101, end: 20060101

REACTIONS (3)
  - LEUKOCYTOCLASTIC VASCULITIS [None]
  - PURPURA [None]
  - SKIN ULCER [None]
